FAERS Safety Report 4716443-2 (Version None)
Quarter: 2005Q3

REPORT INFORMATION
  Report Type: 
  Country: None (occurrence: None)
  Receive Date: 20050719
  Receipt Date: 20050717
  Transmission Date: 20060218
  Serious: Yes (Death, Hospitalization)
  Sender: FDA-Public Use
  Company Number: CZ-JNJFOC-20050503971

PATIENT
  Sex: Female

DRUGS (8)
  1. INFLIXIMAB [Suspect]
     Route: 042
  2. METHOTREXATE [Concomitant]
     Indication: RHEUMATOID ARTHRITIS
     Route: 048
  3. PREDNISON [Concomitant]
     Indication: RHEUMATOID ARTHRITIS
     Route: 048
  4. NSAIDS [Concomitant]
  5. CELEBREX [Concomitant]
     Route: 048
  6. HELICID [Concomitant]
     Route: 048
  7. RANIL [Concomitant]
     Route: 048
  8. ACIDUM FOLICUM [Concomitant]
     Route: 048

REACTIONS (1)
  - TUBERCULOSIS [None]
